FAERS Safety Report 11350451 (Version 1)
Quarter: 2015Q3

REPORT INFORMATION
  Report Type: Report from Study
  Country: US (occurrence: US)
  Receive Date: 20150807
  Receipt Date: 20150807
  Transmission Date: 20151125
  Serious: Yes (Other)
  Sender: FDA-Public Use
  Company Number: US-BAXALTA-2015BAX026684

PATIENT

DRUGS (1)
  1. HUMAN NORMAL IMMUNOGLOBULIN; HYALURONIDASE [Suspect]
     Active Substance: HUMAN IMMUNOGLOBULIN G\HYALURONIDASE RECOMBINANT HUMAN
     Indication: PRIMARY IMMUNODEFICIENCY SYNDROME
     Dosage: 1X A MONTH
     Route: 058

REACTIONS (4)
  - Weight decreased [Unknown]
  - Bladder disorder [Not Recovered/Not Resolved]
  - Gastric disorder [Unknown]
  - Seizure [Not Recovered/Not Resolved]
